FAERS Safety Report 11858150 (Version 1)
Quarter: 2015Q4

REPORT INFORMATION
  Report Type: Spontaneous
  Country: US (occurrence: US)
  Receive Date: 20151222
  Receipt Date: 20151222
  Transmission Date: 20160305
  Serious: No
  Sender: FDA-Public Use
  Company Number: US-TEVA-584993USA

PATIENT
  Sex: Male

DRUGS (1)
  1. TRAZODONE [Suspect]
     Active Substance: TRAZODONE HYDROCHLORIDE
     Indication: INSOMNIA
     Route: 065

REACTIONS (7)
  - Diarrhoea [Unknown]
  - Insomnia [Unknown]
  - Headache [Unknown]
  - Chest pain [Unknown]
  - Vision blurred [Unknown]
  - Intentional product use issue [Unknown]
  - Migraine [Unknown]
